FAERS Safety Report 17158186 (Version 1)
Quarter: 2019Q4

REPORT INFORMATION
  Report Type: Spontaneous
  Country: RU (occurrence: RU)
  Receive Date: 20191216
  Receipt Date: 20191216
  Transmission Date: 20200122
  Serious: Yes (Other)
  Sender: FDA-Public Use
  Company Number: RU-BAYER-2019-222464

PATIENT
  Age: 4 Decade
  Sex: Female

DRUGS (1)
  1. YAZ PLUS [Suspect]
     Active Substance: DROSPIRENONE\ETHINYL ESTRADIOL
     Dosage: UNK
     Route: 048
     Dates: start: 201806

REACTIONS (7)
  - Haemorrhoids thrombosed [None]
  - Sinus tachycardia [None]
  - Dyspnoea exertional [None]
  - Blood pressure increased [None]
  - Haemoptysis [None]
  - Antiphospholipid syndrome [None]
  - Productive cough [None]
